FAERS Safety Report 8745719 (Version 3)
Quarter: 2013Q1

REPORT INFORMATION
  Report Type: Report from Study
  Country: JP (occurrence: JP)
  Receive Date: 20120827
  Receipt Date: 20130116
  Transmission Date: 20140127
  Serious: Yes (Other)
  Sender: FDA-Public Use
  Company Number: JP-009507513-2012SP027858

PATIENT
  Age: 62 Year
  Sex: Male
  Weight: 75 kg

DRUGS (7)
  1. PEGINTRON [Suspect]
     Indication: CHRONIC HEPATITIS C
     Dosage: 1.5 ?G/KG, QW
     Route: 058
     Dates: start: 20120203, end: 20120405
  2. PEGINTRON [Suspect]
     Dosage: 1.1 ?G/KG, QW
     Route: 058
     Dates: start: 20120406, end: 20120419
  3. PEGINTRON [Suspect]
     Dosage: 1.4 ?G/KG, WEEKLY
     Route: 058
     Dates: start: 20120420, end: 20120726
  4. REBETOL [Suspect]
     Indication: CHRONIC HEPATITIS C
     Dosage: 800 MG, QD
     Route: 048
     Dates: start: 20120203, end: 20120726
  5. TELAVIC [Suspect]
     Indication: CHRONIC HEPATITIS C
     Dosage: 2250 MG, QD
     Route: 048
     Dates: start: 20120203, end: 20120426
  6. LOXONIN [Concomitant]
     Indication: PROPHYLAXIS
     Dosage: DOSE: 60 MG/DAY AS NEEDED; FORMULATION: TABLET
     Route: 048
     Dates: start: 20120203
  7. VOLTAREN [Concomitant]
     Indication: PROPHYLAXIS
     Dosage: 50MG/DAY,PRN
     Route: 054
     Dates: start: 20120203

REACTIONS (2)
  - Anaemia [Recovering/Resolving]
  - Platelet count decreased [Recovered/Resolved]
